FAERS Safety Report 12408125 (Version 1)
Quarter: 2016Q2

REPORT INFORMATION
  Report Type: Spontaneous
  Country: JP (occurrence: JP)
  Receive Date: 20160526
  Receipt Date: 20160526
  Transmission Date: 20160815
  Serious: Yes (Other)
  Sender: FDA-Public Use
  Company Number: JP-PFIZER INC-2016157818

PATIENT
  Age: 59 Year
  Sex: Male
  Weight: 62 kg

DRUGS (8)
  1. BIOFERMIN /01617201/ [Concomitant]
     Active Substance: BACILLUS SUBTILIS\LACTOBACILLUS ACIDOPHILUS\STREPTOCOCCUS FAECAIS
     Dosage: 2 DF, 2X/DAY
     Route: 048
  2. LORAZEPAM. [Concomitant]
     Active Substance: LORAZEPAM
     Dosage: 0.5 MG, 3X/DAY
     Route: 048
  3. ZYVOX [Suspect]
     Active Substance: LINEZOLID
     Indication: SPONDYLITIS
     Dosage: 1200 MG, DAILY
     Route: 041
     Dates: start: 20151006, end: 20151030
  4. ZYVOX [Suspect]
     Active Substance: LINEZOLID
     Dosage: 1200 MG, DAILY
     Route: 041
     Dates: start: 20151104, end: 20151125
  5. LYRICA [Concomitant]
     Active Substance: PREGABALIN
     Dosage: 75 MG, 3X/DAY
     Route: 048
  6. ZYVOX [Suspect]
     Active Substance: LINEZOLID
     Indication: SPONDYLITIS
     Dosage: 1200 MG, DAILY
     Route: 048
     Dates: start: 20160107, end: 20160221
  7. TRAMCET [Concomitant]
     Active Substance: ACETAMINOPHEN\TRAMADOL
     Dosage: 4 DF, 4X/DAY
     Route: 048
  8. VITAMINS NOS [Concomitant]
     Active Substance: VITAMINS
     Dosage: 3 DF, 3X/DAY
     Route: 048

REACTIONS (2)
  - Retinal haemorrhage [Unknown]
  - Visual impairment [Recovering/Resolving]

NARRATIVE: CASE EVENT DATE: 20160221
